FAERS Safety Report 7786363-8 (Version None)
Quarter: 2011Q3

REPORT INFORMATION
  Report Type: 
  Country: None (occurrence: None)
  Receive Date: 20110929
  Receipt Date: 20110923
  Transmission Date: 20111222
  Serious: Yes (Hospitalization)
  Sender: FDA-Public Use
  Company Number: US-AMGEN-USASP2011049316

PATIENT
  Age: 80 Year
  Sex: Female

DRUGS (1)
  1. ENBREL [Suspect]
     Indication: PSORIATIC ARTHROPATHY
     Dosage: 50 MG, QWK
     Dates: start: 20110706, end: 20110815

REACTIONS (4)
  - DRUG INEFFECTIVE [None]
  - EYE INFECTION [None]
  - ELECTROLYTE IMBALANCE [None]
  - URINARY TRACT INFECTION [None]
